FAERS Safety Report 10470610 (Version 1)
Quarter: 2014Q3

REPORT INFORMATION
  Report Type: Spontaneous
  Country: NL (occurrence: NL)
  Receive Date: 20140923
  Receipt Date: 20140923
  Transmission Date: 20150326
  Serious: Yes (Hospitalization)
  Sender: FDA-Public Use
  Company Number: NL-TEVA-510080ISR

PATIENT
  Age: 54 Year
  Sex: Female
  Weight: 100 kg

DRUGS (2)
  1. ACENOCOUMAROL TABLET 1MG [Concomitant]
     Active Substance: ACENOCOUMAROL
     Dosage: TWICE DAILY TWO AND A HALF PIECES: EXTRA INFORMATION: VARYING FROM 4 TO 5 PER DAY BASED ON INR
     Route: 048
     Dates: start: 20100202
  2. FLECAINIDEACETAAT TEVA RETARD CAPSULE 50MG [Suspect]
     Active Substance: FLECAINIDE ACETATE
     Indication: ATRIAL FIBRILLATION
     Dosage: 100 MILLIGRAM DAILY; PROLONGED-RELEASE CAPSULE, ONCE DAILY TWO PIECES
     Route: 048
     Dates: start: 20140721

REACTIONS (3)
  - Therapeutic response changed [Not Recovered/Not Resolved]
  - Atrial fibrillation [Not Recovered/Not Resolved]
  - Product substitution issue [None]

NARRATIVE: CASE EVENT DATE: 20140721
